FAERS Safety Report 5501658-6 (Version None)
Quarter: 2007Q4

REPORT INFORMATION
  Report Type: 
  Country: None (occurrence: None)
  Receive Date: 20071022
  Receipt Date: 20070723
  Transmission Date: 20080405
  Serious: No
  Sender: FDA-Public Use
  Company Number: SPV1-2007-03665

PATIENT
  Age: 15 Year
  Sex: Male
  Weight: 65.8 kg

DRUGS (3)
  1. VYVANSE [Suspect]
     Indication: ATTENTION DEFICIT/HYPERACTIVITY DISORDER
     Dosage: 30 MG, 1X/DAY, QD; ORAL
     Route: 048
     Dates: start: 20070722, end: 20070722
  2. PULMICORT [Concomitant]
  3. ALAVERT [Concomitant]

REACTIONS (4)
  - ANTISOCIAL BEHAVIOUR [None]
  - FEELING OF RELAXATION [None]
  - LAZINESS [None]
  - OFF LABEL USE [None]
